FAERS Safety Report 8133996-5 (Version None)
Quarter: 2012Q1

REPORT INFORMATION
  Report Type: 
  Country: None (occurrence: None)
  Receive Date: 20120213
  Receipt Date: 20120203
  Transmission Date: 20120608
  Serious: Yes (Hospitalization)
  Sender: FDA-Public Use
  Company Number: JP-BRISTOL-MYERS SQUIBB COMPANY-16386633

PATIENT
  Age: 38 Year
  Sex: Female

DRUGS (2)
  1. PREDNISOLONE [Concomitant]
     Route: 048
  2. ORENCIA [Suspect]
     Indication: RHEUMATOID ARTHRITIS
     Route: 041
     Dates: start: 20111102, end: 20120104

REACTIONS (2)
  - INTESTINAL PERFORATION [None]
  - ILEAL ULCER [None]
